FAERS Safety Report 7910594-7 (Version None)
Quarter: 2011Q4

REPORT INFORMATION
  Report Type: 
  Country: None (occurrence: None)
  Receive Date: 20111111
  Receipt Date: 20111107
  Transmission Date: 20120403
  Serious: Yes (Death, Other)
  Sender: FDA-Public Use
  Company Number: PHHY2010JP57324

PATIENT
  Sex: Male

DRUGS (10)
  1. AFINITOR [Suspect]
     Dosage: 5 MG, DAILY
     Route: 048
     Dates: start: 20100828, end: 20101116
  2. AMOBAN [Concomitant]
     Indication: METASTATIC RENAL CELL CARCINOMA
     Dosage: 7.5 MG, UNK
     Route: 048
     Dates: start: 20080704, end: 20101206
  3. DEPAS [Concomitant]
     Indication: METASTATIC RENAL CELL CARCINOMA
     Dosage: 1.5 MG, UNK
     Route: 048
     Dates: start: 20100222, end: 20101206
  4. TRANEXAMIC ACID [Concomitant]
     Indication: METASTATIC RENAL CELL CARCINOMA
     Dosage: 750 MG, UNK
     Route: 048
     Dates: start: 20100519, end: 20100731
  5. ADONA [Concomitant]
     Indication: METASTATIC RENAL CELL CARCINOMA
     Dosage: 90 MG, UNK
     Route: 048
     Dates: start: 20100519, end: 20100731
  6. AMLODIPINE [Concomitant]
     Dosage: 5 MG, UNK
     Route: 048
     Dates: start: 20100811, end: 20101206
  7. UREPEARL [Concomitant]
     Indication: PROPHYLAXIS
     Dosage: UNK
     Route: 065
     Dates: start: 20100720
  8. AZULENE SODIUM SULFONATE [Concomitant]
     Indication: PROPHYLAXIS
     Dosage: 200 ML, UNK
     Route: 048
     Dates: start: 20100713
  9. AFINITOR [Suspect]
     Indication: METASTATIC RENAL CELL CARCINOMA
     Dosage: 10 MG, QD
     Route: 048
     Dates: start: 20100712, end: 20100802
  10. SUNITINIB MALATE [Concomitant]
     Indication: METASTATIC RENAL CELL CARCINOMA
     Dosage: 50 MG, UNK
     Route: 048
     Dates: start: 20091202, end: 20100208

REACTIONS (5)
  - STOMATITIS [None]
  - PLEURAL EFFUSION [None]
  - NEOPLASM PROGRESSION [None]
  - METASTASES TO LUNG [None]
  - NEOPLASM MALIGNANT [None]
